FAERS Safety Report 10049185 (Version 2)
Quarter: 2014Q2

REPORT INFORMATION
  Report Type: Spontaneous
  Country: FR (occurrence: FR)
  Receive Date: 20140401
  Receipt Date: 20140508
  Transmission Date: 20141212
  Serious: Yes (Hospitalization)
  Sender: FDA-Public Use
  Company Number: FR-ROCHE-1372115

PATIENT
  Age: 48 Year
  Sex: Male

DRUGS (2)
  1. APRANAX [Suspect]
     Indication: INJURY
     Route: 048
     Dates: start: 20140306, end: 20140311
  2. APRANAX [Suspect]
     Route: 065
     Dates: start: 1999

REACTIONS (5)
  - Thrombocytopenia [Recovered/Resolved]
  - Petechiae [Recovered/Resolved]
  - Epistaxis [Recovered/Resolved]
  - Haemoptysis [Recovered/Resolved]
  - Haematuria [Recovered/Resolved]
